FAERS Safety Report 9615716 (Version 1)
Quarter: 2013Q4

REPORT INFORMATION
  Report Type: Spontaneous
  Country: US (occurrence: None)
  Receive Date: 20131010
  Receipt Date: 20131010
  Transmission Date: 20140711
  Serious: Yes (Hospitalization)
  Sender: FDA-Public Use
  Company Number: None

PATIENT
  Age: 53 Year
  Sex: Female
  Weight: 78.93 kg

DRUGS (2)
  1. VENLAFAXINE ER [Suspect]
     Indication: HOT FLUSH
     Route: 048
     Dates: start: 20120401, end: 20130909
  2. VENLAFAXINE ER [Suspect]
     Indication: MENOPAUSAL SYMPTOMS
     Route: 048
     Dates: start: 20120401, end: 20130909

REACTIONS (2)
  - Blood sodium decreased [None]
  - Urine sodium decreased [None]
